FAERS Safety Report 4316314-X (Version None)
Quarter: 2004Q1

REPORT INFORMATION
  Report Type: 
  Country: None (occurrence: None)
  Receive Date: 20040310
  Receipt Date: 20031208
  Transmission Date: 20041129
  Serious: Yes (Other)
  Sender: FDA-Public Use
  Company Number: HQWYE498509DEC03

PATIENT
  Age: 22 Year
  Sex: Female
  Weight: 74.8 kg

DRUGS (1)
  1. PROTONIX [Suspect]
     Indication: GASTROOESOPHAGEAL REFLUX DISEASE
     Dosage: 40 MG 1 X PER 1 DAY ORAL
     Route: 048
     Dates: start: 20030812, end: 20030813

REACTIONS (4)
  - ANGIONEUROTIC OEDEMA [None]
  - DRUG HYPERSENSITIVITY [None]
  - PHARYNGOLARYNGEAL PAIN [None]
  - URTICARIA [None]
